FAERS Safety Report 10860931 (Version 8)
Quarter: 2015Q4

REPORT INFORMATION
  Report Type: Report from Study
  Country: US (occurrence: US)
  Receive Date: 20150224
  Receipt Date: 20151007
  Transmission Date: 20160304
  Serious: Yes (Hospitalization, Other)
  Sender: FDA-Public Use
  Company Number: US-AMGEN-USACT2015016131

PATIENT
  Age: 71 Year
  Sex: Male

DRUGS (49)
  1. LORTAB [Concomitant]
     Active Substance: ACETAMINOPHEN\HYDROCODONE BITARTRATE
     Indication: RHEUMATOID ARTHRITIS
     Dosage: 5 MG, AS NECESSARY
     Route: 048
     Dates: start: 20060524
  2. DEPO-MEDROL [Concomitant]
     Active Substance: METHYLPREDNISOLONE ACETATE
     Indication: HYPERSENSITIVITY
     Dosage: 80 MG, SINGLE DOSE
     Route: 030
     Dates: start: 20131005, end: 20131005
  3. BUPIVACAIN [Concomitant]
     Active Substance: BUPIVACAINE
     Indication: RHEUMATOID ARTHRITIS
     Dosage: 1 ML, SINGLE DOSE
     Route: 014
     Dates: start: 20120309, end: 20120309
  4. CLARITIN [Concomitant]
     Active Substance: LORATADINE
     Indication: RHINITIS ALLERGIC
     Dosage: 240 MG, QD
     Route: 048
     Dates: start: 20120720, end: 20120723
  5. ASPIRIN                            /00002701/ [Concomitant]
     Active Substance: ASPIRIN
     Dosage: 81 MG, QD
     Route: 048
     Dates: start: 20130415
  6. BENADRYL [Concomitant]
     Active Substance: DIPHENHYDRAMINE HYDROCHLORIDE
     Indication: DERMATITIS CONTACT
     Dosage: 50 MG, AS NECESSARY
     Route: 048
     Dates: start: 20131215
  7. METHOTREXATE [Concomitant]
     Active Substance: METHOTREXATE
     Indication: RHEUMATOID ARTHRITIS
     Dosage: 12.5 MG, QWK
     Route: 048
     Dates: start: 20110328
  8. PREDNISONE. [Concomitant]
     Active Substance: PREDNISONE
     Dosage: 7.5 MG, QD
     Route: 048
     Dates: start: 20130710, end: 20130724
  9. NAPROXEN SODIUM. [Concomitant]
     Active Substance: NAPROXEN SODIUM
     Indication: RHEUMATOID ARTHRITIS
     Dosage: 220 MG, AS NECESSARY
     Route: 048
     Dates: start: 20061023
  10. TOPROL XL [Concomitant]
     Active Substance: METOPROLOL SUCCINATE
     Indication: HYPERTENSION
     Dosage: 50 MG, QD
     Route: 048
     Dates: start: 20090515, end: 20130221
  11. ANTIVERT                           /00072802/ [Concomitant]
     Indication: RHINITIS ALLERGIC
     Dosage: 12.5 MG, AS NECESSARY
     Route: 048
     Dates: start: 20120720, end: 20120723
  12. DEPO-MEDROL [Concomitant]
     Active Substance: METHYLPREDNISOLONE ACETATE
     Indication: RHEUMATOID ARTHRITIS
     Dosage: 80 MG, SINGLE DOSE
     Route: 014
     Dates: start: 20120309, end: 20120309
  13. ROCEPHIN [Concomitant]
     Active Substance: CEFTRIAXONE SODIUM
     Indication: ACUTE SINUSITIS
     Dosage: 1 G, SINGLE DOSE
     Route: 030
     Dates: start: 20120301, end: 20120301
  14. DECADRON [Concomitant]
     Active Substance: DEXAMETHASONE
     Indication: UPPER RESPIRATORY TRACT INFECTION
     Dosage: 4 MG, SINGLE DOSE
     Route: 030
     Dates: start: 20120301, end: 20120301
  15. JALYN [Concomitant]
     Active Substance: DUTASTERIDE\TAMSULOSIN HYDROCHLORIDE
     Indication: URINARY TRACT OBSTRUCTION
  16. FOLIC ACID. [Concomitant]
     Active Substance: FOLIC ACID
     Dosage: 1 MG, QD
     Route: 048
     Dates: start: 20060612
  17. PREDNISONE. [Concomitant]
     Active Substance: PREDNISONE
     Indication: RHEUMATOID ARTHRITIS
     Dosage: 7.5 MG, QD
     Route: 048
     Dates: start: 20110328, end: 20120131
  18. PREDNISONE. [Concomitant]
     Active Substance: PREDNISONE
     Dosage: 10 MG, QD
     Route: 048
     Dates: start: 20120201, end: 20130709
  19. PLAQUENIL [Concomitant]
     Active Substance: HYDROXYCHLOROQUINE SULFATE
     Indication: RHEUMATOID ARTHRITIS
     Dosage: 400 MG, QD
     Route: 048
     Dates: start: 20110116, end: 20140310
  20. COZAAR [Concomitant]
     Active Substance: LOSARTAN POTASSIUM
     Indication: HYPERTENSION
     Dosage: 25 MG, QD
     Route: 048
     Dates: start: 20090515, end: 20130410
  21. RANITIDINE [Concomitant]
     Active Substance: RANITIDINE\RANITIDINE HYDROCHLORIDE
     Indication: GASTROOESOPHAGEAL REFLUX DISEASE
     Dosage: 150 MG, QD
     Route: 048
     Dates: start: 20090515
  22. JALYN [Concomitant]
     Active Substance: DUTASTERIDE\TAMSULOSIN HYDROCHLORIDE
     Indication: BENIGN PROSTATIC HYPERPLASIA
     Dosage: 0.4 MG, QD
     Route: 048
     Dates: start: 20120723, end: 20120823
  23. TRAZODONE [Concomitant]
     Active Substance: TRAZODONE HYDROCHLORIDE
     Indication: INSOMNIA
     Dosage: 50 MG, QD
     Route: 048
     Dates: start: 20130411, end: 20130501
  24. ETANERCEPT [Suspect]
     Active Substance: ETANERCEPT
     Dosage: 50 MG, QWK
     Route: 058
     Dates: end: 20150120
  25. PREDNISONE. [Concomitant]
     Active Substance: PREDNISONE
     Dosage: 5 MG, QD
     Route: 048
     Dates: start: 20130725
  26. CEFDINIR. [Concomitant]
     Active Substance: CEFDINIR
     Dosage: 600 MG, QD
     Route: 048
     Dates: start: 20140822, end: 20140828
  27. ZYRTEC [Concomitant]
     Active Substance: CETIRIZINE HYDROCHLORIDE
     Indication: RHINITIS ALLERGIC
     Dosage: 10 MG, QD
     Route: 048
     Dates: start: 20120326
  28. ETANERCEPT [Suspect]
     Active Substance: ETANERCEPT
     Indication: RHEUMATOID ARTHRITIS
     Dosage: 50 MG, QWK
     Route: 058
     Dates: end: 20140819
  29. TICLOPIDINE [Concomitant]
     Active Substance: TICLOPIDINE
     Indication: CORONARY ARTERY DISEASE
     Dosage: 250 MG, QD
     Route: 048
     Dates: start: 20060103, end: 20130101
  30. COZAAR [Concomitant]
     Active Substance: LOSARTAN POTASSIUM
     Dosage: 50 MG, QD
     Route: 048
     Dates: start: 20140904
  31. DECADRON [Concomitant]
     Active Substance: DEXAMETHASONE
     Indication: HYPERSENSITIVITY
     Dosage: 4 MG, SINGLE DOSE
     Route: 030
     Dates: start: 20131005, end: 20131005
  32. COZAAR [Concomitant]
     Active Substance: LOSARTAN POTASSIUM
     Dosage: 25 MG, QD
     Route: 048
     Dates: start: 20131018, end: 20140903
  33. ANTIVERT                           /00072802/ [Concomitant]
     Indication: DIZZINESS
     Dosage: 12.5 MG, AS NECESSARY
     Route: 048
     Dates: start: 20111024, end: 20120724
  34. CEFDINIR. [Concomitant]
     Active Substance: CEFDINIR
     Indication: ACUTE SINUSITIS
     Dosage: 600 MG, QD
     Route: 048
     Dates: start: 20120301, end: 20120310
  35. ROCEPHIN [Concomitant]
     Active Substance: CEFTRIAXONE SODIUM
     Indication: UPPER RESPIRATORY TRACT INFECTION
     Dosage: 1 G, SINGLE DOSE
     Route: 030
     Dates: start: 20140822, end: 20140822
  36. POLYETHYLENE GLYCOL [Concomitant]
     Active Substance: POLYETHYLENE GLYCOLS
     Dosage: 527 G, QD
     Route: 048
     Dates: start: 20140408
  37. PLAQUENIL [Concomitant]
     Active Substance: HYDROXYCHLOROQUINE SULFATE
     Dosage: 200 MG, QD
     Route: 048
     Dates: start: 20140311
  38. COZAAR [Concomitant]
     Active Substance: LOSARTAN POTASSIUM
     Dosage: 100 MG, QD
     Route: 048
     Dates: start: 20130411, end: 20131017
  39. OMNARIS [Concomitant]
     Active Substance: CICLESONIDE
     Indication: RHINITIS ALLERGIC
     Dosage: UNK UNK, QD
     Route: 045
     Dates: start: 20120720, end: 20120723
  40. TAMSULOSIN HCL [Concomitant]
     Active Substance: TAMSULOSIN
     Indication: RHINITIS ALLERGIC
     Dosage: 0.4 MG, QD
     Route: 048
     Dates: start: 20120723, end: 20120823
  41. BENADRYL [Concomitant]
     Active Substance: DIPHENHYDRAMINE HYDROCHLORIDE
     Indication: HYPERSENSITIVITY
     Dosage: 50 MG, SINGLE DOSE
     Route: 048
     Dates: start: 20131005, end: 20131005
  42. PLETAL [Concomitant]
     Active Substance: CILOSTAZOL
     Indication: PERIPHERAL VASCULAR DISORDER
     Dosage: 200 MG, QD
     Route: 048
     Dates: start: 20120606
  43. CYANOCOBALAMIN. [Concomitant]
     Active Substance: CYANOCOBALAMIN
     Indication: VITAMIN B12 DEFICIENCY
     Dosage: 1000 MUG,  1 IN 1 M
     Route: 030
     Dates: start: 20110328
  44. PRAVASTATIN [Concomitant]
     Active Substance: PRAVASTATIN\PRAVASTATIN SODIUM
     Indication: HYPERLIPIDAEMIA
     Dosage: 20 MG, QD
     Route: 048
     Dates: start: 20111001
  45. ED A HIST [Concomitant]
     Indication: UPPER RESPIRATORY TRACT INFECTION
     Dosage: 10 ML, AS NECESSARY
     Route: 048
     Dates: start: 20120310, end: 20120315
  46. PROMETHAZINE VC                    /01301901/ [Concomitant]
     Indication: RHINITIS ALLERGIC
     Dosage: 6.25 MG, 4 IN 1 D
     Route: 048
     Dates: start: 20120329, end: 20120405
  47. AMLODIPINE [Concomitant]
     Active Substance: AMLODIPINE BESYLATE
     Indication: HYPERTENSION
     Dosage: 5 MG, QD
     Route: 048
     Dates: start: 20130524
  48. BACTROBAN [Concomitant]
     Active Substance: MUPIROCIN\MUPIROCIN CALCIUM
     Indication: SKIN ABRASION
     Dosage: UNK UNK, 2 IN 1 D
     Dates: start: 20120329, end: 20120601
  49. NASONEX [Concomitant]
     Active Substance: MOMETASONE FUROATE
     Indication: RHINITIS ALLERGIC
     Dosage: 1 SPRAY, EVERY DAY
     Route: 045
     Dates: start: 20120321, end: 20120501

REACTIONS (8)
  - Pulmonary embolism [Not Recovered/Not Resolved]
  - Cardiac failure congestive [Recovered/Resolved]
  - Acute myocardial infarction [Recovered/Resolved]
  - Troponin increased [Unknown]
  - Pleural effusion [Recovered/Resolved]
  - Ventricular tachycardia [Recovered/Resolved]
  - Deep vein thrombosis [Not Recovered/Not Resolved]
  - Seizure [Not Recovered/Not Resolved]

NARRATIVE: CASE EVENT DATE: 20140825
